FAERS Safety Report 15483280 (Version 5)
Quarter: 2020Q3

REPORT INFORMATION
  Report Type: Report from Study
  Country: CO (occurrence: CO)
  Receive Date: 20181010
  Receipt Date: 20200701
  Transmission Date: 20201102
  Serious: Yes (Death, Hospitalization)
  Sender: FDA-Public Use
  Company Number: CO-ACTELION-A-CH2018-180133

PATIENT
  Age: 42 Year
  Sex: Male
  Weight: 69 kg

DRUGS (3)
  1. OPSUMIT [Suspect]
     Active Substance: MACITENTAN
     Indication: PULMONARY ARTERIAL HYPERTENSION
     Dosage: 10 MG, QD
     Route: 048
     Dates: start: 20160717, end: 20180918
  2. OPSUMIT [Suspect]
     Active Substance: MACITENTAN
     Dosage: 10 MG, QD
     Route: 048
     Dates: start: 20181222, end: 20200622
  3. RIOCIGUAT. [Concomitant]
     Active Substance: RIOCIGUAT

REACTIONS (12)
  - Fatigue [Recovering/Resolving]
  - Lung disorder [Not Recovered/Not Resolved]
  - Myocardial infarction [Fatal]
  - Arrhythmia [Recovering/Resolving]
  - Inflammation [Recovering/Resolving]
  - Back pain [Recovering/Resolving]
  - Fluid retention [Not Recovered/Not Resolved]
  - Peripheral swelling [Recovering/Resolving]
  - Abdominal distension [Recovering/Resolving]
  - Cardiac failure [Not Recovered/Not Resolved]
  - Pulmonary oedema [Not Recovered/Not Resolved]
  - Asphyxia [Recovering/Resolving]

NARRATIVE: CASE EVENT DATE: 201809
